FAERS Safety Report 12927082 (Version 1)
Quarter: 2016Q4

REPORT INFORMATION
  Report Type: Spontaneous
  Country: US (occurrence: US)
  Receive Date: 20161109
  Receipt Date: 20161109
  Transmission Date: 20170207
  Serious: Yes (Hospitalization)
  Sender: FDA-Public Use
  Company Number: None

PATIENT
  Age: 36 Year
  Sex: Male
  Weight: 96.3 kg

DRUGS (1)
  1. MEMANTINE HYDROCHLORIDE. [Suspect]
     Active Substance: MEMANTINE HYDROCHLORIDE
     Dates: end: 20161028

REACTIONS (5)
  - Pain in extremity [None]
  - Hypoaesthesia [None]
  - Spinal cord oedema [None]
  - Metastases to spine [None]
  - Nausea [None]

NARRATIVE: CASE EVENT DATE: 20161028
